FAERS Safety Report 7425874-1 (Version None)
Quarter: 2011Q2

REPORT INFORMATION
  Report Type: 
  Country: None (occurrence: None)
  Receive Date: 20110420
  Receipt Date: 20110406
  Transmission Date: 20111010
  Serious: Yes (Hospitalization)
  Sender: FDA-Public Use
  Company Number: GB-ROCHE-751170

PATIENT
  Sex: Male
  Weight: 89 kg

DRUGS (24)
  1. ALFACALCIDOL [Concomitant]
     Dates: start: 20080724
  2. LANTHANUM CARBONATE [Concomitant]
     Dates: start: 20090826
  3. MIDODRINE HYDROCHLORIDE [Concomitant]
     Dates: start: 20110113
  4. METHOXY POLYETHYLENE GLYCOL-EPOETIN BETA [Suspect]
     Dosage: LAST DOSE PRIOR TO SAE: 30 NOV2010, FREQUENCY REPORTED AS MONTH, NOT GIVEN DURING EVENT.
     Route: 058
     Dates: start: 20100906
  5. ENOXAPARIN [Concomitant]
     Dates: start: 20101104
  6. SIMVASTATIN [Concomitant]
     Dates: start: 20071122
  7. DIPYRIDAMOLE [Concomitant]
     Dates: start: 20091101
  8. AMIODARONE [Concomitant]
     Dates: start: 20101101
  9. AMITRIPTYLINE [Concomitant]
     Dosage: DRUG REPORTED AS : AMTRIPYLLINE.
     Dates: start: 20101226
  10. AMLODIPINE [Concomitant]
     Dates: end: 20101223
  11. METHOXY POLYETHYLENE GLYCOL-EPOETIN BETA [Suspect]
     Dosage: DATE OF LAST DOSE PRIOR TO SAE: 31 JAN 2011
     Route: 058
  12. PRILOSEC [Concomitant]
     Dates: start: 20080211
  13. ALFACALCIDOL [Concomitant]
     Dosage: TDD: 6 TABLETS
     Dates: start: 20081106
  14. RAMIPRIL [Concomitant]
     Dates: start: 20080724, end: 20101101
  15. PIRITON [Concomitant]
     Dates: start: 20101101
  16. CALCICHEW [Concomitant]
     Dates: start: 20080211
  17. ASPIRIN [Concomitant]
     Dates: start: 20101101
  18. CALFINA [Concomitant]
     Dosage: TDD: 6 TABS
     Dates: start: 20081106
  19. ALFACALCIDOL [Concomitant]
     Dates: start: 20110113
  20. DIPYRIDAMOLE [Concomitant]
  21. GLICLAZIDE [Concomitant]
     Dates: start: 20080211, end: 20101229
  22. PRILOSEC [Concomitant]
     Dates: start: 20101129
  23. PRILOSEC [Concomitant]
     Dates: start: 20110113
  24. ASPIRIN [Concomitant]
     Dates: start: 20110113

REACTIONS (3)
  - FLUID OVERLOAD [None]
  - FALL [None]
  - HYPOGLYCAEMIA [None]
